FAERS Safety Report 15287600 (Version 1)
Quarter: 2018Q3

REPORT INFORMATION
  Report Type: Spontaneous
  Country: IE (occurrence: IE)
  Receive Date: 20180817
  Receipt Date: 20180817
  Transmission Date: 20181010
  Serious: Yes (Other)
  Sender: FDA-Public Use
  Company Number: IE-TEVA-2018-IE-943531

PATIENT
  Age: 82 Year
  Sex: Female

DRUGS (12)
  1. SYMBICORT [Concomitant]
     Active Substance: BUDESONIDE\FORMOTEROL FUMARATE DIHYDRATE
     Indication: ASTHMA
     Dosage: 200/6
     Route: 048
  2. COZAAR COMP [Concomitant]
     Active Substance: HYDROCHLOROTHIAZIDE\LOSARTAN POTASSIUM
     Indication: HYPERTENSION
     Route: 065
  3. ETORICOXIB TEVA [Concomitant]
     Indication: PAIN
  4. TARGIN 10MG/5MG PROLONGED?RELEASE TABLETS [Concomitant]
     Indication: PAIN
     Route: 048
     Dates: start: 20180709, end: 20180711
  5. NEBILET [Concomitant]
     Active Substance: NEBIVOLOL
     Indication: HEART RATE ABNORMAL
     Dosage: 5 MILLIGRAM DAILY;
     Route: 048
  6. ZOLPIDEM TARTRATE TEVA [Suspect]
     Active Substance: ZOLPIDEM TARTRATE
     Indication: INSOMNIA
     Dosage: 10 MILLIGRAM DAILY;
     Route: 048
     Dates: start: 20180712, end: 20180712
  7. DEXAMETHASONE. [Concomitant]
     Active Substance: DEXAMETHASONE
     Indication: PROCEDURAL NAUSEA
     Route: 065
     Dates: start: 20180710, end: 20180710
  8. ETORICOXIB TEVA [Concomitant]
     Indication: INFLAMMATION
     Dosage: 60 MILLIGRAM DAILY;
     Route: 048
     Dates: start: 20180710
  9. ZINACEF [Concomitant]
     Active Substance: CEFUROXIME SODIUM
     Indication: ANTIBIOTIC PROPHYLAXIS
     Route: 042
     Dates: start: 20180709, end: 20180710
  10. INEGY [Concomitant]
     Active Substance: EZETIMIBE\SIMVASTATIN
     Indication: BLOOD CHOLESTEROL INCREASED
     Dosage: 40 MILLIGRAM DAILY; 40/10
     Route: 048
  11. NEXAZOLE [Concomitant]
     Indication: GASTRITIS PROPHYLAXIS
     Dosage: 40 MILLIGRAM DAILY;
     Route: 065
     Dates: start: 20180710
  12. PARACETAMOL [Concomitant]
     Active Substance: ACETAMINOPHEN
     Indication: PAIN
     Route: 065

REACTIONS (4)
  - Anxiety [Recovered/Resolved]
  - Urinary retention [Recovered/Resolved]
  - Emotional distress [Recovered/Resolved]
  - Restlessness [Recovered/Resolved]
